FAERS Safety Report 23445790 (Version 4)
Quarter: 2024Q3

REPORT INFORMATION
  Report Type: Spontaneous
  Country: FI (occurrence: FI)
  Receive Date: 20240126
  Receipt Date: 20240808
  Transmission Date: 20241016
  Serious: Yes (Life-Threatening, Hospitalization)
  Sender: ABBVIE
  Company Number: None

PATIENT
  Age: 52 Year
  Sex: Male

DRUGS (1)
  1. SKYRIZI [Suspect]
     Active Substance: RISANKIZUMAB-RZAA
     Indication: Psoriatic arthropathy
     Dosage: SELF INJECTABLE
     Route: 058
     Dates: start: 20230207, end: 202303

REACTIONS (2)
  - Hepatitis acute [Recovered/Resolved with Sequelae]
  - Hepatic fibrosis [Recovered/Resolved with Sequelae]

NARRATIVE: CASE EVENT DATE: 20230401
